FAERS Safety Report 12450040 (Version 1)
Quarter: 2016Q2

REPORT INFORMATION
  Report Type: Spontaneous
  Country: IN (occurrence: IN)
  Receive Date: 20160609
  Receipt Date: 20160609
  Transmission Date: 20160815
  Serious: Yes (Other)
  Sender: FDA-Public Use
  Company Number: IN-BAUSCH-BL-2016-013316

PATIENT
  Age: 43 Year
  Sex: Male

DRUGS (8)
  1. BRIMONIDINE TARTRATE. [Suspect]
     Active Substance: BRIMONIDINE TARTRATE
     Indication: ANGLE CLOSURE GLAUCOMA
  2. MANNITOL. [Suspect]
     Active Substance: MANNITOL
     Indication: ANGLE CLOSURE GLAUCOMA
  3. TIMOLOL MALEATE. [Suspect]
     Active Substance: TIMOLOL MALEATE
     Indication: ANGLE CLOSURE GLAUCOMA
     Route: 061
  4. BRIMONIDINE TARTRATE. [Suspect]
     Active Substance: BRIMONIDINE TARTRATE
     Indication: IRIDOCORNEAL ENDOTHELIAL SYNDROME
     Route: 065
  5. MANNITOL. [Suspect]
     Active Substance: MANNITOL
     Indication: IRIDOCORNEAL ENDOTHELIAL SYNDROME
     Route: 042
  6. ACETAZOLAMIDE. [Suspect]
     Active Substance: ACETAZOLAMIDE
     Indication: ANGLE CLOSURE GLAUCOMA
  7. TIMOLOL MALEATE. [Suspect]
     Active Substance: TIMOLOL MALEATE
     Indication: IRIDOCORNEAL ENDOTHELIAL SYNDROME
  8. ACETAZOLAMIDE. [Suspect]
     Active Substance: ACETAZOLAMIDE
     Indication: IRIDOCORNEAL ENDOTHELIAL SYNDROME
     Route: 048

REACTIONS (1)
  - Drug effect incomplete [Unknown]
